FAERS Safety Report 8837587 (Version 5)
Quarter: 2013Q1

REPORT INFORMATION
  Report Type: Spontaneous
  Country: US (occurrence: US)
  Receive Date: 20121012
  Receipt Date: 20130313
  Transmission Date: 20140127
  Serious: Yes (Hospitalization, Disabling, Other)
  Sender: FDA-Public Use
  Company Number: US-JNJFOC-20121006079

PATIENT
  Sex: Female

DRUGS (8)
  1. TOPAMAX [Suspect]
     Indication: EPILEPSY
     Route: 048
  2. FLUOXETIN [Suspect]
     Indication: PRODUCT USED FOR UNKNOWN INDICATION
     Route: 065
  3. ABILIFY [Suspect]
     Indication: DEPRESSION
     Route: 065
  4. BUPROPION XL [Suspect]
     Indication: DEPRESSION
     Route: 065
  5. ZOLOFT [Suspect]
     Indication: DEPRESSION
     Route: 065
  6. SYMBICORT [Suspect]
     Indication: ASTHMA
     Route: 065
  7. PROZAC [Suspect]
     Indication: PRODUCT USED FOR UNKNOWN INDICATION
     Route: 065
  8. GLYBURIDE [Suspect]
     Indication: GESTATIONAL DIABETES
     Route: 065

REACTIONS (5)
  - Disability [Unknown]
  - Exposure during pregnancy [Recovered/Resolved]
  - Emotional disorder [Unknown]
  - Injury [Unknown]
  - Postpartum depression [Recovering/Resolving]
